FAERS Safety Report 6111941-1 (Version None)
Quarter: 2009Q1

REPORT INFORMATION
  Report Type: 
  Country: None (occurrence: None)
  Receive Date: 20090311
  Receipt Date: 20090225
  Transmission Date: 20090719
  Serious: No
  Sender: FDA-Public Use
  Company Number: US-B.I. PHARMACEUTICALS,INC./RIDGEFIELD-2009-BP-02765BP

PATIENT

DRUGS (2)
  1. VIRAMUNE [Suspect]
  2. NEVIRAPINE [Concomitant]

REACTIONS (1)
  - LIPODYSTROPHY ACQUIRED [None]
